FAERS Safety Report 19641221 (Version 1)
Quarter: 2021Q3

REPORT INFORMATION
  Report Type: Spontaneous
  Country: NO (occurrence: NO)
  Receive Date: 20210729
  Receipt Date: 20210729
  Transmission Date: 20211014
  Serious: Yes (Life-Threatening)
  Sender: FDA-Public Use
  Company Number: NO-BAXTER-2021BAX022025

PATIENT
  Sex: Female

DRUGS (6)
  1. SEVOFLURAN BAXTER 100%  V?SKE TIL INHALASJONSDAMP [Suspect]
     Active Substance: SEVOFLURANE
     Indication: ANAESTHESIA
  2. SUXAMETHONIUM CHLORIDE DIHYDRATE ETHYPHARM [Suspect]
     Active Substance: SUCCINYLCHOLINE CHLORIDE DIHYDRATE
     Indication: ANAESTHESIA
  3. SUXAMETHONIUM CHLORIDE DIHYDRATE ETHYPHARM [Suspect]
     Active Substance: SUCCINYLCHOLINE CHLORIDE DIHYDRATE
     Indication: CAESAREAN SECTION
     Route: 064
     Dates: start: 20210623, end: 20210623
  4. SEVOFLURAN BAXTER 100%  V?SKE TIL INHALASJONSDAMP [Suspect]
     Active Substance: SEVOFLURANE
     Indication: CAESAREAN SECTION
     Route: 064
     Dates: start: 20210623, end: 20210624
  5. ESMERON [Suspect]
     Active Substance: ROCURONIUM BROMIDE
     Indication: CAESAREAN SECTION
  6. ESMERON [Suspect]
     Active Substance: ROCURONIUM BROMIDE
     Indication: ANAESTHESIA
     Dosage: 2 DOSES GIVEN WITH 30 MIN APART
     Route: 064
     Dates: start: 20210623, end: 20210623

REACTIONS (2)
  - Cardiac arrest [Unknown]
  - Respiratory arrest [Unknown]

NARRATIVE: CASE EVENT DATE: 20210623
